FAERS Safety Report 22703645 (Version 11)
Quarter: 2025Q1

REPORT INFORMATION
  Report Type: Report from Study
  Country: US (occurrence: US)
  Receive Date: 20230714
  Receipt Date: 20250328
  Transmission Date: 20250408
  Serious: Yes (Other)
  Sender: ACADIA PHARMACEUTICALS
  Company Number: US-ACADIA PHARMACEUTICALS INC.-ACA-2023-PIM-002529

PATIENT
  Age: 80 Year
  Sex: Male

DRUGS (27)
  1. NUPLAZID [Suspect]
     Active Substance: PIMAVANSERIN TARTRATE
     Indication: Parkinson^s disease psychosis
     Dosage: 34 MILLIGRAM, QD
     Route: 048
     Dates: start: 20230622, end: 202308
  2. NUPLAZID [Suspect]
     Active Substance: PIMAVANSERIN TARTRATE
     Indication: Hallucination
     Dosage: 34 MILLIGRAM, QD
     Route: 048
     Dates: start: 20230831
  3. NUPLAZID [Suspect]
     Active Substance: PIMAVANSERIN TARTRATE
     Indication: Delusion
     Dosage: 34 MILLIGRAM, QD
     Route: 048
     Dates: start: 20231215, end: 20250313
  4. ASPERCREME WITH LIDOCAINE [LIDOCAINE] [Concomitant]
     Dates: start: 20230710
  5. ASPIRIN [Concomitant]
     Active Substance: ASPIRIN
  6. ATORVASTATIN [Concomitant]
     Active Substance: ATORVASTATIN
  7. BUPROPION HYDROCHLORIDE [Concomitant]
     Active Substance: BUPROPION HYDROCHLORIDE
  8. COLCHICINE [Concomitant]
     Active Substance: COLCHICINE
  9. DESVENLAFAXINE [Concomitant]
     Active Substance: DESVENLAFAXINE
  10. FINASTERIDE [Concomitant]
     Active Substance: FINASTERIDE
  11. FLUDROCORTISONE [Concomitant]
     Active Substance: FLUDROCORTISONE
  12. ICY HOT (MENTHOL) [Concomitant]
     Active Substance: MENTHOL
  13. KETOCONAZOLE [Concomitant]
     Active Substance: KETOCONAZOLE
  14. LEVOTHYROXINE [Concomitant]
     Active Substance: LEVOTHYROXINE
  15. LIDOCAINE [Concomitant]
     Active Substance: LIDOCAINE
  16. MIDODRINE [Concomitant]
     Active Substance: MIDODRINE
  17. MINERALS\VITAMINS [Concomitant]
     Active Substance: MINERALS\VITAMINS
  18. PYRIDOSTIGMINE [Concomitant]
     Active Substance: PYRIDOSTIGMINE
  19. ROPINIROLE [Concomitant]
     Active Substance: ROPINIROLE
  20. SYSTANE ULTRA [Concomitant]
     Active Substance: POLYETHYLENE GLYCOL 400\PROPYLENE GLYCOL
  21. TAMSULOSIN [Concomitant]
     Active Substance: TAMSULOSIN
  22. THERAWORX RELIEF [Concomitant]
  23. VITAMIN C [Concomitant]
     Active Substance: ASCORBIC ACID
  24. VITAMIN D3 [Concomitant]
     Active Substance: CHOLECALCIFEROL
  25. OMEPRAZOLE [Concomitant]
     Active Substance: OMEPRAZOLE
  26. COLERGIS [Concomitant]
  27. HYDROMORPHONE [Concomitant]
     Active Substance: HYDROMORPHONE

REACTIONS (15)
  - Pneumonia [Recovered/Resolved]
  - Hallucination, visual [Not Recovered/Not Resolved]
  - Hallucination [Not Recovered/Not Resolved]
  - Hallucination [Recovered/Resolved]
  - Drug interaction [Recovered/Resolved]
  - Adverse event [Not Recovered/Not Resolved]
  - Illness [Unknown]
  - Memory impairment [Not Recovered/Not Resolved]
  - Palliative care [Not Recovered/Not Resolved]
  - Vomiting [Unknown]
  - Depression [Unknown]
  - Condition aggravated [Recovered/Resolved]
  - Illness [Unknown]
  - Nausea [Unknown]
  - Product dose omission issue [Recovered/Resolved]

NARRATIVE: CASE EVENT DATE: 20230701
